FAERS Safety Report 9162385 (Version 1)
Quarter: 2013Q1

REPORT INFORMATION
  Report Type: Spontaneous
  Country: US (occurrence: US)
  Receive Date: 20130314
  Receipt Date: 20130314
  Transmission Date: 20140127
  Serious: No
  Sender: FDA-Public Use
  Company Number: US-PFIZER INC-2013086007

PATIENT
  Age: 2 Year
  Sex: Female

DRUGS (2)
  1. CHILDREN^S MOTRIN [Suspect]
     Indication: PYREXIA
     Dosage: UNK
     Route: 065
  2. CHILDREN^S MOTRIN [Suspect]
     Indication: PYREXIA
     Dosage: 1 TEASPOON, ONCE
     Route: 065
     Dates: start: 20121220, end: 20121220

REACTIONS (2)
  - Drug ineffective [Unknown]
  - Product odour abnormal [Unknown]
